FAERS Safety Report 4798639-7 (Version None)
Quarter: 2005Q4

REPORT INFORMATION
  Report Type: 
  Country: None (occurrence: None)
  Receive Date: 20051014
  Receipt Date: 20051006
  Transmission Date: 20060501
  Serious: Yes (Hospitalization, Other)
  Sender: FDA-Public Use
  Company Number: US-JNJFOC-20050804726

PATIENT
  Age: 58 Year
  Sex: Female

DRUGS (4)
  1. EXTRA STRENGTH TYLENOL [Suspect]
  2. EXTRA STRENGTH TYLENOL [Suspect]
     Indication: BACK PAIN
  3. FOSAMAX [Concomitant]
  4. LIQUID ALOE [Concomitant]

REACTIONS (2)
  - HYPERTENSION [None]
  - HYPERTONIC BLADDER [None]
